FAERS Safety Report 6017437-X (Version None)
Quarter: 2008Q4

REPORT INFORMATION
  Report Type: 
  Country: None (occurrence: None)
  Receive Date: 20081219
  Receipt Date: 20081203
  Transmission Date: 20090506
  Serious: Yes (Hospitalization)
  Sender: FDA-Public Use
  Company Number: IDA-00159

PATIENT
  Age: 59 Year
  Sex: Female

DRUGS (12)
  1. AVLOCARDYL          (PROPRANOLOL)  40MG [Suspect]
     Dosage: 20 MG PRN ORAL FORMULATION: TABLET
     Route: 048
     Dates: start: 20081001, end: 20081002
  2. GLIMEPIRIDE [Suspect]
     Dosage: 1 DF TID ORAL
     Route: 048
     Dates: start: 20080801, end: 20081003
  3. ALPRAZOLAM [Suspect]
     Dosage: 1.5 MG DAILY ORAL FORMULATION: TABLET
     Route: 048
  4. ISOSORBIDE DINITRATE [Concomitant]
  5. FLECAINIDE ACETATE [Concomitant]
  6. ASPIRIN [Concomitant]
  7. VALSARTAN [Concomitant]
  8. ESCITALOPRAM [Concomitant]
  9. ZOLPIDEM TARTRATE [Concomitant]
  10. CERIS (TROSPIUM) [Concomitant]
  11. MEPRONIZINE (ACEPROMETAZINE, MEPROBAMATE) [Concomitant]
  12. ACETAMINOPHEN [Concomitant]

REACTIONS (4)
  - HYPOGLYCAEMIA [None]
  - HYPOTHERMIA [None]
  - SINUS BRADYCARDIA [None]
  - WRONG DRUG ADMINISTERED [None]
